FAERS Safety Report 7024346-6 (Version None)
Quarter: 2010Q4

REPORT INFORMATION
  Report Type: 
  Country: None (occurrence: None)
  Receive Date: 20101001
  Receipt Date: 20100924
  Transmission Date: 20110411
  Serious: Yes (Disabling)
  Sender: FDA-Public Use
  Company Number: US-JNJFOC-20030706001

PATIENT
  Sex: Female
  Weight: 73.48 kg

DRUGS (5)
  1. LEVAQUIN [Suspect]
     Indication: ASTHMA
     Route: 048
     Dates: start: 20030703, end: 20030712
  2. LEVAQUIN [Suspect]
     Indication: SINUSITIS
     Route: 048
     Dates: start: 20030703, end: 20030712
  3. ZYRTEC-D 12 HOUR [Concomitant]
     Indication: SINUSITIS
  4. NASONEX [Concomitant]
  5. ADVAIR DISKUS 100/50 [Concomitant]
     Route: 055

REACTIONS (2)
  - TENDON RUPTURE [None]
  - TENOSYNOVITIS [None]
